FAERS Safety Report 24061114 (Version 5)
Quarter: 2024Q4

REPORT INFORMATION
  Report Type: Spontaneous
  Country: US (occurrence: US)
  Receive Date: 20240708
  Receipt Date: 20241014
  Transmission Date: 20250115
  Serious: Yes (Other)
  Sender: PFIZER
  Company Number: US-PFIZER INC-PV202400086720

PATIENT
  Age: 69 Year
  Sex: Female

DRUGS (6)
  1. XELJANZ XR [Interacting]
     Active Substance: TOFACITINIB CITRATE
     Indication: Rheumatoid arthritis
     Dosage: 11 MG, 1X/DAY (30 TAB BOTTLE), IN MORNING
  2. INFLIXIMAB [Interacting]
     Active Substance: INFLIXIMAB
     Dosage: UNK
     Dates: end: 20240624
  3. REMICADE [Suspect]
     Active Substance: INFLIXIMAB
  4. NORVASC [Concomitant]
     Active Substance: AMLODIPINE BESYLATE
     Indication: Hypertension
     Dosage: 10 MILLIGRAMS, ONCE A DAY
  5. LIPITOR [Concomitant]
     Active Substance: ATORVASTATIN CALCIUM
     Indication: Blood cholesterol
     Dosage: 20 MILLIGRAMS, ONCE A DAY
  6. WARFARIN SODIUM [Concomitant]
     Active Substance: WARFARIN SODIUM
     Indication: Anticoagulant therapy
     Dosage: 5 MILLIGRAMS, ONCE A DAY

REACTIONS (4)
  - Systemic lupus erythematosus [Unknown]
  - Drug interaction [Unknown]
  - Musculoskeletal stiffness [Unknown]
  - Pain in extremity [Unknown]
